FAERS Safety Report 15958694 (Version 1)
Quarter: 2019Q1

REPORT INFORMATION
  Report Type: Spontaneous
  Country: US (occurrence: US)
  Receive Date: 20190213
  Receipt Date: 20190213
  Transmission Date: 20190417
  Serious: Yes (Other)
  Sender: FDA-Public Use
  Company Number: US-NAPPMUNDI-USA-2018-0144477

PATIENT
  Age: 42 Year
  Sex: Female

DRUGS (7)
  1. PERCOCET                           /00446701/ [Concomitant]
     Active Substance: ACETAMINOPHEN\OXYCODONE HYDROCHLORIDE\OXYCODONE TEREPHTHALATE
     Dosage: 10MG / 325MG, X 2-3 DAYS
     Route: 048
     Dates: start: 201806
  2. PERCOCET                           /00446701/ [Concomitant]
     Active Substance: ACETAMINOPHEN\OXYCODONE HYDROCHLORIDE\OXYCODONE TEREPHTHALATE
     Dosage: (0.5 X 5 MG) 2.5 MG, BID
     Route: 048
  3. PERCOCET                           /00446701/ [Concomitant]
     Active Substance: ACETAMINOPHEN\OXYCODONE HYDROCHLORIDE\OXYCODONE TEREPHTHALATE
     Indication: BREAKTHROUGH PAIN
     Dosage: (1.5 X 5 MG) 7.5 MG, QID
     Route: 048
     Dates: start: 201808
  4. SOMA [Concomitant]
     Active Substance: CARISOPRODOL
     Indication: MUSCLE RELAXANT THERAPY
     Dosage: 350 MG, BID
     Route: 048
  5. BUPRENORPHINE TRANSDERMAL PATCH (SIMILAR TO NDA 21-306) [Suspect]
     Active Substance: BUPRENORPHINE
     Indication: TORTICOLLIS
  6. BUPRENORPHINE TRANSDERMAL PATCH (SIMILAR TO NDA 21-306) [Suspect]
     Active Substance: BUPRENORPHINE
     Indication: CERVICAL DYSPLASIA
     Dosage: 5 MCG/HR, WEEKLY
     Route: 062
     Dates: start: 201805, end: 201808
  7. PERCOCET                           /00446701/ [Concomitant]
     Active Substance: ACETAMINOPHEN\OXYCODONE HYDROCHLORIDE\OXYCODONE TEREPHTHALATE
     Dosage: 7.5MG / 325MG 3-4 DAYS
     Route: 048
     Dates: start: 201806

REACTIONS (8)
  - Inappropriate schedule of product administration [Recovered/Resolved]
  - Restless legs syndrome [Recovered/Resolved]
  - Unevaluable event [Recovered/Resolved]
  - Formication [Recovered/Resolved]
  - Drug effect decreased [Recovered/Resolved]
  - Drug withdrawal syndrome [Recovered/Resolved]
  - Insomnia [Recovered/Resolved]
  - Hypoaesthesia oral [Recovered/Resolved]

NARRATIVE: CASE EVENT DATE: 201806
